FAERS Safety Report 24703696 (Version 2)
Quarter: 2024Q4

REPORT INFORMATION
  Report Type: Report from Study
  Country: PT (occurrence: PT)
  Receive Date: 20241206
  Receipt Date: 20241224
  Transmission Date: 20250114
  Serious: Yes (Other)
  Sender: ABBVIE
  Company Number: PT-ABBVIE-6031655

PATIENT
  Age: 64 Year
  Sex: Male

DRUGS (17)
  1. CARBIDOPA\LEVODOPA [Suspect]
     Active Substance: CARBIDOPA\LEVODOPA
     Indication: Parkinson^s disease
     Dosage: 240 MG + 12 MG, LOAD:0.9;HI:0.65;BA:0.6;LOW:0.55;EXT:0.2.
     Route: 058
     Dates: start: 202411
  2. CARBIDOPA\LEVODOPA [Suspect]
     Active Substance: CARBIDOPA\LEVODOPA
     Dosage: 240 MG + 12 MG, LOAD:1;HI:0.65;BA:0.6;LOW:0.45;EXT:0.2, LAST ADMIN DATE: NOV 2024
     Route: 058
     Dates: start: 20241111
  3. NEUROBION [Concomitant]
     Active Substance: CYANOCOBALAMIN\PYRIDOXINE\THIAMINE
     Indication: Product used for unknown indication
     Dosage: START DATE TEXT: BEFORE DUODOPA
  4. QUETIAPINE [Concomitant]
     Active Substance: QUETIAPINE
     Indication: Agitation
     Dosage: 0.5 TABLET?START DATE TEXT: BEFORE DUODOPA
  5. DUTASTERIDE\TAMSULOSIN [Concomitant]
     Active Substance: DUTASTERIDE\TAMSULOSIN
     Indication: Product used for unknown indication
     Dosage: 1 TABLET, AT DINNER?START DATE TEXT: BEFORE DUODOPA
  6. MELATONIN [Concomitant]
     Active Substance: MELATONIN
     Indication: Product used for unknown indication
     Dosage: 1 TABLET, AT BEDTIME?START DATE TEXT: BEFORE DUODOPA
  7. POLYETHYLENE GLYCOLS [Concomitant]
     Active Substance: POLYETHYLENE GLYCOLS
     Indication: Product used for unknown indication
     Dosage: START DATE TEXT: BEFORE DUODOPA
  8. XADAGO [Concomitant]
     Active Substance: SAFINAMIDE MESYLATE
     Indication: Parkinson^s disease
     Dosage: 1 TABLET, AT LUNCH?START DATE TEXT: BEFORE DUODOPA
  9. ESOMEPRAZOLE [Concomitant]
     Active Substance: ESOMEPRAZOLE
     Indication: Product used for unknown indication
     Dosage: START DATE TEXT: BEFORE DUODOPA
  10. MIRTAZAPINE [Concomitant]
     Active Substance: MIRTAZAPINE
     Indication: Product used for unknown indication
     Dosage: 1 TABLET, AT BEDTIME?START DATE TEXT: BEFORE DUODOPA
  11. DUTASTERIDE [Concomitant]
     Active Substance: DUTASTERIDE
     Indication: Product used for unknown indication
     Dosage: 1 TABLET, AT DINNER?START DATE TEXT: BEFORE DUODOPA
  12. DULOXETINE [Concomitant]
     Active Substance: DULOXETINE
     Indication: Product used for unknown indication
     Dosage: 1 TABLET, IN THE MORNING?START DATE TEXT: BEFORE DUODOPA
  13. RIVASTIGMINE [Concomitant]
     Active Substance: RIVASTIGMINE
     Indication: Product used for unknown indication
     Dosage: 1 PATCH PER DAY?13.3?START DATE TEXT: BEFORE DUODOPA
     Route: 062
  14. MEMANTINE [Concomitant]
     Active Substance: MEMANTINE
     Indication: Product used for unknown indication
     Dosage: 1 TABLET, AT BREAKFAST?START DATE TEXT: BEFORE DUODOPA
  15. MIDODRINE HYDROCHLORIDE [Concomitant]
     Active Substance: MIDODRINE HYDROCHLORIDE
     Indication: Orthostatic hypotension
     Dosage: 2 TABLET, AT BREAKFAST?START DATE TEXT: BEFORE DUODOPA
  16. RIVOTRIL [Concomitant]
     Active Substance: CLONAZEPAM
     Indication: Product used for unknown indication
     Dosage: 2 TABLET, 0.5TAB MORNING+0.5TAB 4PM+1TAB BEDTIME?START DATE TEXT: BEFORE DUODOPA
  17. Symprove [Concomitant]
     Indication: Product used for unknown indication
     Dosage: START DATE TEXT: BEFORE DUODOPA

REACTIONS (6)
  - Suture insertion [Not Recovered/Not Resolved]
  - Balance disorder [Recovered/Resolved]
  - Fall [Recovered/Resolved]
  - Head injury [Recovered/Resolved]
  - Fall [Recovered/Resolved]
  - Haemorrhage [Recovered/Resolved]

NARRATIVE: CASE EVENT DATE: 20241101
